FAERS Safety Report 14371443 (Version 1)
Quarter: 2018Q1

REPORT INFORMATION
  Report Type: Spontaneous
  Country: CO (occurrence: CO)
  Receive Date: 20180110
  Receipt Date: 20180110
  Transmission Date: 20180509
  Serious: Yes (Hospitalization, Other)
  Sender: FDA-Public Use
  Company Number: CO-ASTELLAS-2018US001295

PATIENT
  Age: 48 Year
  Sex: Female

DRUGS (15)
  1. CRIZOTINIB [Suspect]
     Active Substance: CRIZOTINIB
     Dosage: UNK, UNKNOWN FREQ.
     Route: 065
     Dates: start: 20160225, end: 201604
  2. AVASTIN [Suspect]
     Active Substance: BEVACIZUMAB
     Indication: LUNG NEOPLASM MALIGNANT
     Dosage: UNK UNK, UNKNOWN FREQ.
     Route: 065
     Dates: end: 20131025
  3. AVASTIN [Suspect]
     Active Substance: BEVACIZUMAB
     Dosage: UNK UNK, UNKNOWN FREQ.
     Route: 065
     Dates: start: 20131115, end: 20131115
  4. AVASTIN [Suspect]
     Active Substance: BEVACIZUMAB
     Dosage: UNK UNK, UNKNOWN FREQ.
     Route: 065
     Dates: start: 20161118, end: 20170127
  5. CRIZOTINIB [Suspect]
     Active Substance: CRIZOTINIB
     Indication: LUNG NEOPLASM MALIGNANT
     Dosage: 250 MG EVERY 12 HOURS
     Route: 065
     Dates: start: 20140113
  6. CRIZOTINIB [Suspect]
     Active Substance: CRIZOTINIB
     Dosage: 200 MG EVERY 12 HOURS
     Route: 065
     Dates: start: 20151111, end: 20160121
  7. NIVOLUMAB [Suspect]
     Active Substance: NIVOLUMAB
     Indication: LUNG NEOPLASM MALIGNANT
     Dosage: UNK, UNKNOWN FREQ.
     Route: 065
     Dates: start: 20170214, end: 20170728
  8. ERLOTINIB [Suspect]
     Active Substance: ERLOTINIB
     Indication: LUNG NEOPLASM MALIGNANT
     Dosage: UNK, UNKNOWN FREQ.
     Route: 065
     Dates: start: 20131207
  9. ERLOTINIB [Suspect]
     Active Substance: ERLOTINIB
     Dosage: UNK, UNKNOWN FREQ.
     Route: 065
     Dates: start: 20160225, end: 201604
  10. CARBOPLATIN. [Suspect]
     Active Substance: CARBOPLATIN
     Indication: LUNG NEOPLASM MALIGNANT
     Dosage: UNK, UNKNOWN FREQ.
     Route: 065
     Dates: end: 20131025
  11. PEMETREXED. [Suspect]
     Active Substance: PEMETREXED
     Indication: LUNG NEOPLASM MALIGNANT
     Dosage: UNK, UNKNOWN FREQ.
     Route: 065
  12. PEMETREXED. [Suspect]
     Active Substance: PEMETREXED
     Dosage: UNK, UNKNOWN FREQ.
     Route: 065
     Dates: start: 20151111, end: 20160121
  13. CARBOPLATIN. [Suspect]
     Active Substance: CARBOPLATIN
     Dosage: UNK, UNKNOWN FREQ.
     Route: 065
     Dates: start: 20161118, end: 20170127
  14. PACLITAXEL. [Suspect]
     Active Substance: PACLITAXEL
     Indication: LUNG NEOPLASM MALIGNANT
     Dosage: UNK, UNKNOWN FREQ.
     Route: 065
     Dates: end: 20131025
  15. PEMETREXED. [Suspect]
     Active Substance: PEMETREXED
     Dosage: UNK, UNKNOWN FREQ.
     Route: 065
     Dates: start: 20161118, end: 20170127

REACTIONS (27)
  - Hepatic steatosis [Unknown]
  - Haematuria [Unknown]
  - Arthralgia [Unknown]
  - Lymphadenopathy [Unknown]
  - Pneumonitis [Unknown]
  - Diarrhoea [Unknown]
  - Dyspnoea [Unknown]
  - Discomfort [Unknown]
  - Neuropathy peripheral [Unknown]
  - Osteopenia [Unknown]
  - Drug ineffective [Unknown]
  - Embolism [Unknown]
  - Pneumonitis [Recovered/Resolved]
  - Sleep disorder [Unknown]
  - Ovarian cyst [Unknown]
  - Asthenia [Unknown]
  - Toxicity to various agents [Unknown]
  - Malignant neoplasm progression [Unknown]
  - Adenomyosis [Unknown]
  - Endometrial atrophy [Unknown]
  - Insomnia [Unknown]
  - Nausea [Unknown]
  - Leukocyturia [Unknown]
  - Cough [Unknown]
  - Umbilical hernia [Unknown]
  - Myalgia [Unknown]
  - Pain [Unknown]

NARRATIVE: CASE EVENT DATE: 2014
